FAERS Safety Report 17103824 (Version 1)
Quarter: 2019Q4

REPORT INFORMATION
  Report Type: Spontaneous
  Country: US (occurrence: US)
  Receive Date: 20191203
  Receipt Date: 20191203
  Transmission Date: 20200122
  Serious: No
  Sender: FDA-Public Use
  Company Number: US-LUPIN PHARMACEUTICALS INC.-2019-05734

PATIENT
  Age: 59 Year
  Sex: Female
  Weight: 81.63 kg

DRUGS (2)
  1. LOSARTAN POTASSIUM TABLET USP 50 MG [Suspect]
     Active Substance: LOSARTAN POTASSIUM
     Indication: HYPERTENSION
     Dosage: 50 MILLIGRAM, QD
     Route: 048
     Dates: start: 20160201, end: 20160210
  2. AMLODIPINE BESYLATE TABLETS USP, 5 MG [Suspect]
     Active Substance: AMLODIPINE BESYLATE
     Indication: PRODUCT USED FOR UNKNOWN INDICATION
     Dosage: UNK
     Route: 065
     Dates: start: 2017

REACTIONS (8)
  - Asthenia [Recovered/Resolved]
  - Palpitations [Recovered/Resolved]
  - Hypersensitivity [Recovered/Resolved]
  - Malaise [Recovered/Resolved]
  - Apathy [Recovered/Resolved]
  - Product substitution issue [Unknown]
  - Headache [Recovered/Resolved]
  - Feeling abnormal [Recovered/Resolved]

NARRATIVE: CASE EVENT DATE: 20160201
